FAERS Safety Report 20778889 (Version 3)
Quarter: 2022Q2

REPORT INFORMATION
  Report Type: Spontaneous
  Country: PL (occurrence: PL)
  Receive Date: 20220503
  Receipt Date: 20220512
  Transmission Date: 20220721
  Serious: Yes (Hospitalization, Other)
  Sender: FDA-Public Use
  Company Number: PL-NOVARTISPH-NVSC2022PL100544

PATIENT
  Age: 76 Year
  Sex: Male

DRUGS (4)
  1. ATORVASTATIN [Suspect]
     Active Substance: ATORVASTATIN
     Indication: Blood cholesterol increased
     Dosage: UNK (HALF A TABLET)
     Route: 065
  2. ATORVASTATIN [Suspect]
     Active Substance: ATORVASTATIN
     Indication: Blood cholesterol decreased
     Dosage: 40 MG, QD (IN EVENING)
     Route: 065
     Dates: start: 20130808
  3. MAGNESIUM OXIDE\PYRIDOXINE HYDROCHLORIDE [Concomitant]
     Active Substance: MAGNESIUM OXIDE\PYRIDOXINE HYDROCHLORIDE
     Indication: Product used for unknown indication
     Dosage: UNK, BID
     Route: 065
  4. ACENOCOUMAROL [Concomitant]
     Active Substance: ACENOCOUMAROL
     Indication: Product used for unknown indication
     Dosage: UNK
     Route: 065
     Dates: start: 2013, end: 202003

REACTIONS (37)
  - Atrial fibrillation [Unknown]
  - Chest pain [Recovering/Resolving]
  - Chest discomfort [Unknown]
  - Anal ulcer [Unknown]
  - Deafness [Unknown]
  - Peripheral swelling [Recovering/Resolving]
  - Head discomfort [Unknown]
  - International normalised ratio increased [Unknown]
  - Peripheral coldness [Recovering/Resolving]
  - Adhesion [Unknown]
  - Movement disorder [Unknown]
  - Arthropathy [Unknown]
  - Burning sensation [Unknown]
  - Skin irritation [Unknown]
  - Skin exfoliation [Unknown]
  - Skin lesion [Unknown]
  - Hypoacusis [Unknown]
  - Back pain [Unknown]
  - Abdominal pain [Unknown]
  - Pain in extremity [Unknown]
  - Hypoaesthesia [Recovering/Resolving]
  - Myalgia [Unknown]
  - Decreased appetite [Unknown]
  - Abdominal pain upper [Unknown]
  - Oropharyngeal pain [Unknown]
  - Headache [Unknown]
  - Constipation [Unknown]
  - Flatulence [Unknown]
  - Insomnia [Unknown]
  - Dizziness [Unknown]
  - Taste disorder [Unknown]
  - Vision blurred [Unknown]
  - Tinnitus [Recovering/Resolving]
  - Alopecia [Unknown]
  - Neck pain [Unknown]
  - Fatigue [Unknown]
  - Swelling of eyelid [Unknown]
